FAERS Safety Report 8834718 (Version 4)
Quarter: 2013Q2

REPORT INFORMATION
  Report Type: Spontaneous
  Country: US (occurrence: None)
  Receive Date: 20120926
  Receipt Date: 20130412
  Transmission Date: 20140414
  Serious: Yes (Other)
  Sender: FDA-Public Use
  Company Number: 2012032502

PATIENT
  Age: 53 Year
  Sex: Female
  Weight: 69.85 kg

DRUGS (5)
  1. HIZENTRA [Suspect]
     Indication: IMMUNODEFICIENCY COMMON VARIABLE
     Dosage: 1 GM ON 4 SITES OVER 1-2 HOURS
     Route: 058
     Dates: start: 20120529, end: 20120529
  2. LIDOCAINE/PRILOCAINE (EMLA) [Concomitant]
  3. EPI-PEN (EPINEPHRINE) [Concomitant]
  4. LAMOTRIGINE [Concomitant]
  5. LEVOTHYROXINE [Concomitant]

REACTIONS (8)
  - Feeling abnormal [None]
  - Fatigue [None]
  - Hunger [None]
  - Infusion site infection [None]
  - Influenza like illness [None]
  - Infusion site swelling [None]
  - Infusion site pain [None]
  - Infusion site scab [None]
